FAERS Safety Report 4577641-4 (Version None)
Quarter: 2005Q1

REPORT INFORMATION
  Report Type: 
  Country: None (occurrence: None)
  Receive Date: 20050208
  Receipt Date: 20050125
  Transmission Date: 20050727
  Serious: Yes (Other)
  Sender: FDA-Public Use
  Company Number: 2005-01-0032

PATIENT
  Age: 34 Year
  Sex: Female
  Weight: 56 kg

DRUGS (1)
  1. CLARITIN-D [Suspect]
     Indication: NASAL CONGESTION
     Dosage: (5+120) MG QD ORAL
     Route: 048
     Dates: start: 20041230, end: 30041230

REACTIONS (6)
  - APTYALISM [None]
  - DYSGEUSIA [None]
  - HYPERSENSITIVITY [None]
  - PRURITUS [None]
  - RASH [None]
  - SKIN EXFOLIATION [None]
